FAERS Safety Report 10551180 (Version 1)
Quarter: 2014Q4

REPORT INFORMATION
  Report Type: Spontaneous
  Country: US (occurrence: None)
  Receive Date: 20141028
  Receipt Date: 20141028
  Transmission Date: 20150529
  Serious: Yes (Hospitalization)
  Sender: FDA-Public Use
  Company Number: None

PATIENT
  Age: 43 Year
  Sex: Female
  Weight: 64.86 kg

DRUGS (1)
  1. QSYMIA [Suspect]
     Active Substance: PHENTERMINE HYDROCHLORIDE\TOPIRAMATE
     Indication: WEIGHT CONTROL
     Dosage: ONE CAPSULE ONCE DAILY TAKEN BY MOUTH
     Route: 048
     Dates: start: 20141024, end: 20141024

REACTIONS (11)
  - Loss of consciousness [None]
  - Syncope [None]
  - Abasia [None]
  - Disorientation [None]
  - Anxiety [None]
  - Heart rate increased [None]
  - Hypoaesthesia [None]
  - Transient ischaemic attack [None]
  - Tremor [None]
  - Speech disorder [None]
  - Confusional state [None]

NARRATIVE: CASE EVENT DATE: 20141024
